FAERS Safety Report 5343933-4 (Version None)
Quarter: 2007Q2

REPORT INFORMATION
  Report Type: 
  Country: None (occurrence: None)
  Receive Date: 20070531
  Receipt Date: 20070525
  Transmission Date: 20071010
  Serious: Yes (Hospitalization, Disabling, Other)
  Sender: FDA-Public Use
  Company Number: 07042091

PATIENT
  Age: 60 Year
  Sex: Female

DRUGS (4)
  1. CARBAMAZEPINE [Suspect]
     Indication: CONVULSION
     Dosage: 400MG, BID, ORAL
     Route: 048
  2. LITHIUM CARBONATE [Concomitant]
  3. RISPERDAL [Concomitant]
  4. PROZAC [Concomitant]

REACTIONS (4)
  - BIPOLAR DISORDER [None]
  - CONDITION AGGRAVATED [None]
  - CONVULSION [None]
  - MENTAL DISORDER [None]
